FAERS Safety Report 4674341-7 (Version None)
Quarter: 2005Q2

REPORT INFORMATION
  Report Type: 
  Country: None (occurrence: None)
  Receive Date: 20050526
  Receipt Date: 20050513
  Transmission Date: 20051028
  Serious: Yes (Hospitalization)
  Sender: FDA-Public Use
  Company Number: CH-JNJFOC-20050503936

PATIENT
  Sex: Male

DRUGS (3)
  1. HALDOL [Suspect]
     Route: 049
     Dates: start: 20040730, end: 20040813
  2. HALDOL [Suspect]
     Route: 049
     Dates: start: 20040730, end: 20040813
  3. HALDOL [Suspect]
     Indication: DRUG USE FOR UNKNOWN INDICATION
     Route: 049
     Dates: start: 20040730, end: 20040813

REACTIONS (5)
  - HEPATITIS A ANTIBODY POSITIVE [None]
  - LIVER DISORDER [None]
  - NAUSEA [None]
  - SYNCOPE [None]
  - VOMITING [None]
